FAERS Safety Report 9160932 (Version 1)
Quarter: 2013Q1

REPORT INFORMATION
  Report Type: Spontaneous
  Country: US (occurrence: None)
  Receive Date: 20130215
  Receipt Date: 20130215
  Transmission Date: 20140127
  Serious: Yes (Other)
  Sender: FDA-Public Use
  Company Number: SYM-2013-00468

PATIENT
  Age: 80 Year
  Sex: Female

DRUGS (5)
  1. XENAZINE (TETRABENAZINE) (12.5 MILLIGRAM, TABLETS) (TETRABENAZINE) [Suspect]
     Indication: DYSKINESIA
     Route: 048
     Dates: start: 20130126, end: 20130201
  2. METOPROLOL (METOPROLOL) (METOPROLOL) [Concomitant]
  3. AMLODIPINE (AMLODIPINE) (AMLODIPINE) [Concomitant]
  4. CITALOPRAM (CITALOPRAM) (CITALOPRAM) [Concomitant]
  5. CHLORAZEPATE (ALL OTHER THERAPEUTIC PRODUCTS) [Concomitant]

REACTIONS (3)
  - Asthenia [None]
  - Tremor [None]
  - Gait disturbance [None]
